FAERS Safety Report 21378920 (Version 1)
Quarter: 2022Q3

REPORT INFORMATION
  Report Type: Spontaneous
  Country: ES (occurrence: ES)
  Receive Date: 20220927
  Receipt Date: 20220927
  Transmission Date: 20221027
  Serious: Yes (Hospitalization, Other)
  Sender: FDA-Public Use
  Company Number: ES-AEMPS-1260161

PATIENT
  Age: 82 Year
  Sex: Female

DRUGS (11)
  1. IBUPROFEN [Suspect]
     Active Substance: IBUPROFEN
     Indication: Pain
     Dosage: 600.0 MG C/12 H
     Route: 048
     Dates: start: 20211207
  2. MOTILIUM [Concomitant]
     Active Substance: DOMPERIDONE
     Indication: Atrial fibrillation
     Dosage: 10.0 MG A-DECOCE
     Route: 048
     Dates: start: 20220831, end: 20220901
  3. ENALAPRIL NORMON [Concomitant]
     Indication: Essential hypertension
     Dosage: 5.0 MG DECO, 60 TABLETS
     Route: 048
     Dates: start: 20191002
  4. STALEVO [Concomitant]
     Active Substance: CARBIDOPA\ENTACAPONE\LEVODOPA
     Indication: Epilepsy
     Dosage: 1.0 COMP C/4 HORAS
     Route: 048
     Dates: start: 20220704
  5. DIGOXIN [Concomitant]
     Active Substance: DIGOXIN
     Indication: Atrial fibrillation
     Dosage: 0.125 MG C/24 H, 50 TABLETS
     Route: 048
     Dates: start: 20220831
  6. Clonazepam biomed [Concomitant]
     Indication: Senile dementia
     Dosage: 8.0 MG CE, 60 TABLETS
     Route: 048
     Dates: start: 20211109
  7. TRAMADOL PARACETAMOL CINFA [Concomitant]
     Indication: Pain
     Dosage: 1.0 COMP C/12 H, 20 TABLETS
     Route: 048
     Dates: start: 20220816, end: 20220825
  8. QUETIAPINE FUMARATE [Concomitant]
     Active Substance: QUETIAPINE FUMARATE
     Indication: Senile dementia
     Dosage: 25.0 MG A-DECE, 60 TABLETS
     Route: 048
     Dates: start: 20220519
  9. OMEPRAZOLE [Concomitant]
     Active Substance: OMEPRAZOLE
     Indication: Renal impairment
     Dosage: 20.0 MG DECE, 56 CAPSULES
     Route: 048
     Dates: start: 20180905
  10. CYANOCOBALAMIN [Concomitant]
     Active Substance: CYANOCOBALAMIN
     Indication: Pernicious anaemia
     Dosage: 1.0 MG C/7 DIAS, 5 AMPOULES OF 2 ML
     Route: 030
     Dates: start: 20210113
  11. LEVETIRACETAM [Concomitant]
     Active Substance: LEVETIRACETAM
     Indication: Senile dementia
     Dosage: 500 MILLIGRAM
     Route: 048
     Dates: start: 20220520

REACTIONS (1)
  - Upper gastrointestinal haemorrhage [Recovering/Resolving]

NARRATIVE: CASE EVENT DATE: 20220901
